FAERS Safety Report 24685841 (Version 2)
Quarter: 2024Q4

REPORT INFORMATION
  Report Type: Spontaneous
  Country: CN (occurrence: CN)
  Receive Date: 20241202
  Receipt Date: 20241210
  Transmission Date: 20250115
  Serious: Yes (Hospitalization, Other)
  Sender: SANOFI AVENTIS
  Company Number: CN-MLMSERVICE-20241119-PI262560-00097-1

PATIENT
  Age: 35 Year
  Sex: Male
  Weight: 101 kg

DRUGS (3)
  1. DUPILUMAB [Suspect]
     Active Substance: DUPILUMAB
     Indication: Dermatitis atopic
     Dosage: UNK
     Dates: start: 2023
  2. DUPILUMAB [Suspect]
     Active Substance: DUPILUMAB
     Dosage: 600 MG INITIATED IN ACCORDANCE WITH THE STANDARD TREATMENT PROCEDURE
     Route: 058
     Dates: start: 2023
  3. CYCLOSPORINE [Suspect]
     Active Substance: CYCLOSPORINE
     Indication: Dermatitis atopic
     Dosage: 175 MG, BID
     Route: 048
     Dates: start: 202307

REACTIONS (12)
  - Eczema herpeticum [Recovered/Resolved]
  - Blister [Recovered/Resolved]
  - Skin lesion [Recovered/Resolved]
  - Erythema [Recovered/Resolved]
  - Discomfort [Recovered/Resolved]
  - Swelling face [Recovered/Resolved]
  - Scab [Recovered/Resolved]
  - Pain [Recovered/Resolved]
  - Staphylococcal infection [Unknown]
  - Pyrexia [Unknown]
  - Herpes simplex [Recovered/Resolved]
  - Pruritus [Recovered/Resolved]

NARRATIVE: CASE EVENT DATE: 20230701
